FAERS Safety Report 5773955-0 (Version None)
Quarter: 2008Q2

REPORT INFORMATION
  Report Type: 
  Country: None (occurrence: None)
  Receive Date: 20080601
  Receipt Date: 20080320
  Transmission Date: 20081010
  Serious: No
  Sender: FDA-Public Use
  Company Number: US200803005223

PATIENT
  Age: 66 Year
  Sex: Female
  Weight: 80.3 kg

DRUGS (2)
  1. BYETTA [Suspect]
     Indication: BLOOD GLUCOSE INCREASED
     Dosage: 5 UG, 2/D, SUBCUTANEOUS
     Route: 058
     Dates: start: 20080224
  2. SYNTHROID [Concomitant]

REACTIONS (3)
  - ANORECTAL DISCOMFORT [None]
  - FUNGAL SKIN INFECTION [None]
  - PRURITUS [None]
